FAERS Safety Report 23298557 (Version 1)
Quarter: 2023Q4

REPORT INFORMATION
  Report Type: Spontaneous
  Country: JP (occurrence: JP)
  Receive Date: 20231214
  Receipt Date: 20231214
  Transmission Date: 20240110
  Serious: Yes (Other)
  Sender: FDA-Public Use
  Company Number: JP-ASTRAZENECA-202136790_013120_P_1

PATIENT
  Age: 66 Year
  Sex: Male
  Weight: 59 kg

DRUGS (7)
  1. NIVOLUMAB [Suspect]
     Active Substance: NIVOLUMAB
     Indication: Non-small cell lung cancer
  2. IPILIMUMAB [Suspect]
     Active Substance: IPILIMUMAB
     Indication: Non-small cell lung cancer
     Dosage: UNKNOWN
     Dates: start: 20210710, end: 20211101
  3. IMFINZI [Suspect]
     Active Substance: DURVALUMAB
     Indication: Non-small cell lung cancer
     Route: 041
     Dates: start: 20200611, end: 20200903
  4. IMFINZI [Suspect]
     Active Substance: DURVALUMAB
     Route: 041
     Dates: end: 20200917
  5. IMFINZI [Suspect]
     Active Substance: DURVALUMAB
     Route: 041
     Dates: start: 20201126, end: 20210520
  6. CISPLATIN [Suspect]
     Active Substance: CISPLATIN
     Indication: Non-small cell lung cancer
     Dosage: UNKNOWN
     Dates: start: 20210710, end: 20211101
  7. PEMETREXED [Suspect]
     Active Substance: PEMETREXED
     Indication: Non-small cell lung cancer
     Dosage: UNKNOWN
     Dates: start: 20210710, end: 20211101

REACTIONS (4)
  - Interstitial lung disease [Not Recovered/Not Resolved]
  - Non-small cell lung cancer [Unknown]
  - Blood thyroid stimulating hormone decreased [Recovered/Resolved]
  - Radiation pneumonitis [Recovering/Resolving]

NARRATIVE: CASE EVENT DATE: 20200903
